FAERS Safety Report 6829634-1 (Version None)
Quarter: 2010Q3

REPORT INFORMATION
  Report Type: 
  Country: None (occurrence: None)
  Receive Date: 20100709
  Receipt Date: 20070424
  Transmission Date: 20110219
  Serious: Yes (Other)
  Sender: FDA-Public Use
  Company Number: US-PFIZER INC-2007012063

PATIENT
  Sex: Male
  Weight: 83.9 kg

DRUGS (2)
  1. CHANTIX [Suspect]
     Indication: SMOKING CESSATION THERAPY
     Dates: start: 20070131
  2. SUMATRIPTAN SUCCINATE (IMITREX) [Concomitant]
     Route: 048

REACTIONS (4)
  - CONSTIPATION [None]
  - FLATULENCE [None]
  - HUNGER [None]
  - VISION BLURRED [None]
